FAERS Safety Report 8099708-9 (Version None)
Quarter: 2012Q1

REPORT INFORMATION
  Report Type: 
  Country: None (occurrence: None)
  Receive Date: 20120129
  Receipt Date: 20110906
  Transmission Date: 20120608
  Serious: No
  Sender: FDA-Public Use
  Company Number: US-ABBOTT-11P-163-0852012-00

PATIENT
  Age: 41 Year
  Sex: Female

DRUGS (2)
  1. HUMIRA [Suspect]
     Indication: CROHN'S DISEASE
     Dates: start: 20110625
  2. AMITRIPTYLINE HCL [Concomitant]
     Indication: PROPHYLAXIS

REACTIONS (7)
  - SENSITIVITY OF TEETH [None]
  - FLUSHING [None]
  - RESPIRATORY TRACT INFECTION [None]
  - UPPER RESPIRATORY TRACT INFECTION [None]
  - PYREXIA [None]
  - COUGH [None]
  - TOOTH DISORDER [None]
